FAERS Safety Report 9095619 (Version 1)
Quarter: 2013Q1

REPORT INFORMATION
  Report Type: Spontaneous
  Country: US (occurrence: None)
  Receive Date: 20130122
  Receipt Date: 20130122
  Transmission Date: 20140127
  Serious: No
  Sender: FDA-Public Use
  Company Number: 2013-00026

PATIENT
  Age: 48 Year
  Sex: Male

DRUGS (2)
  1. ZICAM EXTREME CONGESTION NASAL GEL [Suspect]
     Indication: NASOPHARYNGITIS
     Dosage: 1X/NOSTRIL 2-3 TIMES PER DAY
     Dates: start: 20130106, end: 20130116
  2. ZICAM EXTREME CONGESTION NASAL GEL [Suspect]
     Indication: INFLUENZA
     Dosage: 1X/NOSTRIL 2-3 TIMES PER DAY
     Dates: start: 20130106, end: 20130116

REACTIONS (2)
  - Anosmia [None]
  - Ageusia [None]
